FAERS Safety Report 8367913-X (Version None)
Quarter: 2012Q2

REPORT INFORMATION
  Report Type: 
  Country: None (occurrence: None)
  Receive Date: 20120516
  Receipt Date: 20120514
  Transmission Date: 20120825
  Serious: Yes (Other)
  Sender: FDA-Public Use
  Company Number: GP111111

PATIENT
  Age: 36 Year
  Sex: Male
  Weight: 102.0593 kg

DRUGS (3)
  1. GRISEOFULVIN [Suspect]
     Indication: TINEA PEDIS
     Dosage: BID - ORAL
     Route: 048
     Dates: start: 20111012, end: 20111104
  2. GRISEOFULVIN [Suspect]
     Indication: TINEA CRURIS
     Dosage: BID - ORAL
     Route: 048
     Dates: start: 20111012, end: 20111104
  3. UNSPECIFIED VITAMINS [Concomitant]

REACTIONS (3)
  - CONFUSIONAL STATE [None]
  - VIOLENCE-RELATED SYMPTOM [None]
  - PSYCHOTIC DISORDER [None]
